FAERS Safety Report 7643654-9 (Version None)
Quarter: 2011Q3

REPORT INFORMATION
  Report Type: 
  Country: None (occurrence: None)
  Receive Date: 20110729
  Receipt Date: 20110721
  Transmission Date: 20111222
  Serious: Yes (Other)
  Sender: FDA-Public Use
  Company Number: PHHY2011AU51327

PATIENT
  Sex: Female
  Weight: 90 kg

DRUGS (6)
  1. ZOLOFT [Concomitant]
     Indication: DEPRESSION
     Dosage: UNK UKN, DAILY
     Route: 048
  2. CELEBREX [Concomitant]
     Indication: ARTHRITIS
     Dosage: 2 DF, OR 1 DF
     Route: 048
  3. ZOMETA [Suspect]
     Indication: BREAST CANCER METASTATIC
     Dosage: 4 MG, EVERY 4 WEEKS
     Dates: start: 20101209
  4. MICARDIS [Concomitant]
     Indication: HYPERTENSION
     Dosage: 80 MG, DAILY
     Route: 048
  5. LIPITOR [Concomitant]
     Indication: HYPERCHOLESTEROLAEMIA
     Dosage: 80 MG, DAILTY
     Route: 048
  6. FEMARA [Concomitant]
     Indication: BREAST CANCER METASTATIC
     Dosage: 2.5 MG, DAILY
     Route: 048

REACTIONS (6)
  - OEDEMA PERIPHERAL [None]
  - GAIT DISTURBANCE [None]
  - INFLUENZA LIKE ILLNESS [None]
  - MYALGIA [None]
  - PAIN IN EXTREMITY [None]
  - ARTHRALGIA [None]
